FAERS Safety Report 9047145 (Version 1)
Quarter: 2013Q1

REPORT INFORMATION
  Report Type: Report from Study
  Country: US (occurrence: US)
  Receive Date: 20130130
  Receipt Date: 20130130
  Transmission Date: 20140127
  Serious: No
  Sender: FDA-Public Use
  Company Number: US-ABBOTT-12P-163-0976704-00

PATIENT
  Age: 34 Year
  Sex: Female

DRUGS (2)
  1. HUMIRA [Suspect]
     Indication: CROHN^S DISEASE
     Dates: start: 20120601
  2. MONONESSA [Concomitant]
     Indication: ORAL CONTRACEPTION

REACTIONS (7)
  - Wrong technique in drug usage process [Recovering/Resolving]
  - Incorrect dose administered [Recovering/Resolving]
  - Needle issue [Recovering/Resolving]
  - Injection site nodule [Recovering/Resolving]
  - Injection site pain [Recovering/Resolving]
  - Injection site pain [Recovering/Resolving]
  - Injection site bruising [Recovering/Resolving]
